FAERS Safety Report 19873717 (Version 2)
Quarter: 2021Q3

REPORT INFORMATION
  Report Type: Spontaneous
  Country: GB (occurrence: GB)
  Receive Date: 20210923
  Receipt Date: 20210923
  Transmission Date: 20211014
  Serious: Yes (Other)
  Sender: FDA-Public Use
  Company Number: GB-BION-010042

PATIENT
  Age: 30 Year
  Sex: Female

DRUGS (5)
  1. PREDNISOLONE. [Concomitant]
     Active Substance: PREDNISOLONE
     Indication: RELAPSING-REMITTING MULTIPLE SCLEROSIS
  2. METHYLPREDNISOLONE. [Concomitant]
     Active Substance: METHYLPREDNISOLONE
     Indication: RELAPSING-REMITTING MULTIPLE SCLEROSIS
     Route: 048
  3. FUMARIC ACID [Concomitant]
     Active Substance: FUMARIC ACID
     Indication: RELAPSING-REMITTING MULTIPLE SCLEROSIS
  4. GLATIRAMER [Concomitant]
     Active Substance: GLATIRAMER
     Indication: RELAPSING-REMITTING MULTIPLE SCLEROSIS
  5. AMANTADINE HYDROCHLORIDE. [Suspect]
     Active Substance: AMANTADINE HYDROCHLORIDE
     Indication: RELAPSING-REMITTING MULTIPLE SCLEROSIS
     Dosage: 200 MG TWICE A?DAY

REACTIONS (8)
  - Fall [Unknown]
  - Reading disorder [Recovered/Resolved]
  - Drug effective for unapproved indication [Not Recovered/Not Resolved]
  - Gait inability [Recovered/Resolved]
  - Ataxia [Recovered/Resolved]
  - Hallucination, visual [Recovered/Resolved]
  - Cognitive disorder [Recovered/Resolved]
  - Incontinence [Recovered/Resolved]
